FAERS Safety Report 7973932-5 (Version None)
Quarter: 2011Q4

REPORT INFORMATION
  Report Type: 
  Country: None (occurrence: None)
  Receive Date: 20111129
  Receipt Date: 20110808
  Transmission Date: 20120403
  Serious: Yes (Other)
  Sender: FDA-Public Use
  Company Number: PHEH2011US01099

PATIENT
  Age: 75 Year
  Sex: Male

DRUGS (1)
  1. AFINITOR [Suspect]
     Dosage: 10 MG, QD, ORAL
     Route: 048
     Dates: start: 20101201, end: 20110629

REACTIONS (1)
  - DISEASE PROGRESSION [None]
